FAERS Safety Report 15977918 (Version 6)
Quarter: 2024Q2

REPORT INFORMATION
  Report Type: Report from Study
  Country: FR (occurrence: FR)
  Receive Date: 20190218
  Receipt Date: 20240417
  Transmission Date: 20240716
  Serious: Yes (Hospitalization, Other)
  Sender: FDA-Public Use
  Company Number: FR-ABBVIE-19K-056-2668750-00

PATIENT
  Age: 69 Year
  Sex: Female
  Weight: 57 kg

DRUGS (5)
  1. HUMIRA [Suspect]
     Active Substance: ADALIMUMAB
     Indication: Colitis ulcerative
     Dosage: FIRST AND LAST ADMIN DATE: DEC 2018
     Route: 058
  2. HUMIRA [Suspect]
     Active Substance: ADALIMUMAB
     Dosage: FIRST DOSE
     Route: 058
     Dates: start: 20181130, end: 20181130
  3. HUMIRA [Suspect]
     Active Substance: ADALIMUMAB
     Route: 058
     Dates: start: 20181214, end: 20181214
  4. REMICADE [Suspect]
     Active Substance: INFLIXIMAB
     Indication: Colitis ulcerative
     Dosage: 5 MILLIGRAMS
     Route: 042
     Dates: start: 20190115
  5. PREDNISONE [Concomitant]
     Active Substance: PREDNISONE
     Indication: Colitis ulcerative
     Route: 048
     Dates: start: 20190210, end: 20190306

REACTIONS (5)
  - Colitis [Recovered/Resolved]
  - Urinary tract infection [Recovered/Resolved]
  - Therapy non-responder [Unknown]
  - Drug ineffective [Unknown]
  - Hyperthermia [Recovered/Resolved]

NARRATIVE: CASE EVENT DATE: 20181214
